FAERS Safety Report 11913253 (Version 10)
Quarter: 2016Q4

REPORT INFORMATION
  Report Type: Spontaneous
  Country: US (occurrence: US)
  Receive Date: 20160113
  Receipt Date: 20161111
  Transmission Date: 20170206
  Serious: Yes (Death, Hospitalization, Other)
  Sender: FDA-Public Use
  Company Number: US-PFIZER INC-2016003980

PATIENT
  Age: 88 Year
  Sex: Female
  Weight: 52 kg

DRUGS (5)
  1. XALKORI [Suspect]
     Active Substance: CRIZOTINIB
     Indication: LUNG NEOPLASM MALIGNANT
     Dosage: 250 MG, 2X/DAY
     Route: 048
     Dates: start: 20151229
  2. XALKORI [Suspect]
     Active Substance: CRIZOTINIB
     Dosage: UNK
     Route: 048
  3. XALKORI [Suspect]
     Active Substance: CRIZOTINIB
     Dosage: UNK
  4. XALKORI [Suspect]
     Active Substance: CRIZOTINIB
     Dosage: UNK
     Route: 048
  5. XALKORI [Suspect]
     Active Substance: CRIZOTINIB
     Dosage: UNK

REACTIONS (14)
  - Pyrexia [Unknown]
  - Infection [Unknown]
  - Depression [Unknown]
  - Thrombosis [Unknown]
  - Cough [Unknown]
  - Oral mucosal eruption [Unknown]
  - Oxygen saturation decreased [Unknown]
  - Vision blurred [Unknown]
  - Drug dose omission [Unknown]
  - Lung neoplasm malignant [Fatal]
  - Peripheral swelling [Unknown]
  - Chills [Unknown]
  - Dysphagia [Unknown]
  - Disease progression [Fatal]

NARRATIVE: CASE EVENT DATE: 20160105
